FAERS Safety Report 12069682 (Version 3)
Quarter: 2016Q1

REPORT INFORMATION
  Report Type: Spontaneous
  Country: NZ (occurrence: NZ)
  Receive Date: 20160211
  Receipt Date: 20160225
  Transmission Date: 20160526
  Serious: Yes (Hospitalization, Disabling)
  Sender: FDA-Public Use
  Company Number: NZ-B.I. PHARMACEUTICALS,INC./RIDGEFIELD-2016-BI-08439AU

PATIENT
  Age: 45 Year
  Sex: Male

DRUGS (1)
  1. PRADAXA [Suspect]
     Active Substance: DABIGATRAN ETEXILATE MESYLATE
     Indication: PRODUCT USED FOR UNKNOWN INDICATION
     Route: 065

REACTIONS (4)
  - Aortic valve incompetence [Unknown]
  - Septic embolus [Unknown]
  - Peripheral ischaemia [Unknown]
  - Peripheral ischaemia [Unknown]

NARRATIVE: CASE EVENT DATE: 20150913
